FAERS Safety Report 8570165-9 (Version None)
Quarter: 2012Q3

REPORT INFORMATION
  Report Type: 
  Country: None (occurrence: None)
  Receive Date: 20120803
  Receipt Date: 20120726
  Transmission Date: 20120928
  Serious: Yes (Hospitalization)
  Sender: FDA-Public Use
  Company Number: ES-ABBOTT-12P-144-0960699-00

PATIENT
  Age: 48 Year
  Sex: Male

DRUGS (11)
  1. CLOPIDOGREL [Concomitant]
     Indication: MYOCARDIAL INFARCTION
     Dates: start: 20060101
  2. AZATHIOPRINE [Concomitant]
     Indication: CROHN'S DISEASE
     Dosage: DURATION: 7 YRS, 7 MTHS
  3. HUMIRA [Suspect]
     Route: 058
  4. OMEPRAZOLE [Concomitant]
     Indication: PROPHYLAXIS
  5. FUROSEMIDE [Concomitant]
     Indication: MYOCARDIAL INFARCTION
     Dates: start: 20060101
  6. HUMIRA [Suspect]
     Indication: CROHN'S DISEASE
     Route: 058
     Dates: start: 20071115, end: 20071115
  7. OMEPRAZOLE [Concomitant]
     Indication: GASTRIC DISORDER
     Dates: start: 20060101
  8. SULFASALAZINE [Concomitant]
     Indication: CROHN'S DISEASE
     Dosage: DURATION:  10 MTHS
  9. HUMIRA [Suspect]
     Dosage: WEEK 2
     Route: 058
  10. ATORVASTATIN CALCIUM [Concomitant]
     Indication: MYOCARDIAL INFARCTION
     Dates: start: 20060101
  11. RAMIPRIL [Concomitant]
     Indication: MYOCARDIAL INFARCTION
     Dates: start: 20090101

REACTIONS (2)
  - DRUG EFFECT DECREASED [None]
  - FISTULA DISCHARGE [None]
